FAERS Safety Report 18600511 (Version 6)
Quarter: 2022Q3

REPORT INFORMATION
  Report Type: Spontaneous
  Country: US (occurrence: US)
  Receive Date: 20201210
  Receipt Date: 20220927
  Transmission Date: 20221027
  Serious: No
  Sender: FDA-Public Use
  Company Number: US-PFIZER INC-2020485658

PATIENT
  Age: 61 Year
  Sex: Male

DRUGS (3)
  1. ARTHROTEC [Suspect]
     Active Substance: DICLOFENAC SODIUM\MISOPROSTOL
     Dosage: UNK, AS NEEDED ((1 BID); QUANTITY FOR 90 DAYS: 180, 75MG 180 TABLETS)
  2. ARTHROTEC [Suspect]
     Active Substance: DICLOFENAC SODIUM\MISOPROSTOL
     Dosage: UNK, AS NEEDED (SIG 1 DAILY AS NEEDED)
  3. ARTHROTEC [Suspect]
     Active Substance: DICLOFENAC SODIUM\MISOPROSTOL
     Dosage: UNK, DAILY (SIG 1 DAILY AS DIRECTED)

REACTIONS (3)
  - Off label use [Unknown]
  - Impaired driving ability [Unknown]
  - Pain [Unknown]
